FAERS Safety Report 11545312 (Version 1)
Quarter: 2015Q3

REPORT INFORMATION
  Report Type: Spontaneous
  Country: US (occurrence: US)
  Receive Date: 20150924
  Receipt Date: 20150924
  Transmission Date: 20151125
  Serious: No
  Sender: FDA-Public Use
  Company Number: US-009507513-1509USA007546

PATIENT
  Age: 25 Year
  Sex: Female
  Weight: 136.5 kg

DRUGS (1)
  1. NEXPLANON [Suspect]
     Active Substance: ETONOGESTREL
     Dosage: UNK
     Route: 059
     Dates: start: 20140401

REACTIONS (5)
  - Medical device complication [Unknown]
  - Device deployment issue [Unknown]
  - Weight decreased [Unknown]
  - Implant site pain [Not Recovered/Not Resolved]
  - Hypoaesthesia [Recovering/Resolving]

NARRATIVE: CASE EVENT DATE: 2014
